FAERS Safety Report 5232392-8 (Version None)
Quarter: 2007Q1

REPORT INFORMATION
  Report Type: 
  Country: None (occurrence: None)
  Receive Date: 20070207
  Receipt Date: 20070205
  Transmission Date: 20070707
  Serious: Yes (Other)
  Sender: FDA-Public Use
  Company Number: IN-BRISTOL-MYERS SQUIBB COMPANY-13669742

PATIENT
  Age: 52 Year
  Sex: Male

DRUGS (3)
  1. CYCLOPHOSPHAMIDE [Suspect]
  2. CYCLOSPORINE [Suspect]
  3. PREDNISOLONE [Suspect]

REACTIONS (5)
  - IMMUNOSUPPRESSION [None]
  - LYMPHOPENIA [None]
  - PAPILLOMA [None]
  - SQUAMOUS CELL CARCINOMA [None]
  - VIRAL INFECTION [None]
